FAERS Safety Report 8746448 (Version 2)
Quarter: 2014Q2

REPORT INFORMATION
  Report Type: Report from Study
  Country: US (occurrence: US)
  Receive Date: 20120827
  Receipt Date: 20140404
  Transmission Date: 20141212
  Serious: Yes (Death, Hospitalization, Other)
  Sender: FDA-Public Use
  Company Number: US-ELI_LILLY_AND_COMPANY-US201208006380

PATIENT
  Age: 55 Year
  Sex: Male

DRUGS (1)
  1. OLANZAPINE LONG-ACTING IM [Suspect]
     Indication: PRODUCT USED FOR UNKNOWN INDICATION
     Dosage: 405 MG, UNKNOWN
     Route: 030
     Dates: start: 20120306

REACTIONS (3)
  - Death [Fatal]
  - Intentional self-injury [Unknown]
  - Insomnia [Unknown]
